FAERS Safety Report 16193039 (Version 2)
Quarter: 2021Q4

REPORT INFORMATION
  Report Type: Report from Study
  Country: US (occurrence: US)
  Receive Date: 20190413
  Receipt Date: 20211011
  Transmission Date: 20220303
  Serious: No
  Sender: FDA-Public Use
  Company Number: PHEH2019US016071

PATIENT
  Sex: Male

DRUGS (7)
  1. COSENTYX [Suspect]
     Active Substance: SECUKINUMAB
     Indication: Psoriasis
     Dosage: 300 OT, UNK (4)
     Route: 065
     Dates: start: 20180221
  2. COSENTYX [Suspect]
     Active Substance: SECUKINUMAB
     Dosage: 300 OT, UNK (4)
     Route: 065
     Dates: start: 20180328
  3. COSENTYX [Suspect]
     Active Substance: SECUKINUMAB
     Dosage: 300 OT, UNK (4)
     Route: 065
     Dates: start: 20180914
  4. COSENTYX [Suspect]
     Active Substance: SECUKINUMAB
     Dosage: 300 MG
     Route: 065
     Dates: start: 20191101
  5. COSENTYX [Suspect]
     Active Substance: SECUKINUMAB
     Dosage: 300 MG, QMO
     Route: 065
     Dates: start: 20200311
  6. UNSPECIFIED INGREDIENT [Concomitant]
     Active Substance: UNSPECIFIED INGREDIENT
     Indication: Product used for unknown indication
     Dosage: UNK, UNKNOWN
     Route: 065
  7. CORTICOSTEROID NOS [Concomitant]
     Active Substance: CORTICOSTEROID NOS
     Indication: Product used for unknown indication
     Dosage: UNK, UNKNOWN
     Route: 065

REACTIONS (3)
  - Hyperlipidaemia [Unknown]
  - Gamma-glutamyltransferase increased [Unknown]
  - Candida infection [Unknown]

NARRATIVE: CASE EVENT DATE: 20181001
